FAERS Safety Report 9315680 (Version 3)
Quarter: 2013Q3

REPORT INFORMATION
  Report Type: Report from Study
  Country: US (occurrence: US)
  Receive Date: 20130529
  Receipt Date: 20130808
  Transmission Date: 20140515
  Serious: Yes (Hospitalization, Other)
  Sender: FDA-Public Use
  Company Number: US-ELI_LILLY_AND_COMPANY-US201305001408

PATIENT
  Age: 76 Year
  Sex: Female

DRUGS (16)
  1. TERIPARATIDE [Suspect]
     Indication: OSTEOPOROSIS
     Dosage: UNK
     Route: 065
     Dates: start: 20130417
  2. TERIPARATIDE [Suspect]
     Indication: SENILE OSTEOPOROSIS
     Dosage: UNK, QOD
     Route: 065
     Dates: start: 20130425
  3. TERIPARATIDE [Suspect]
     Dosage: UNK, QD
  4. ADVAIR [Concomitant]
  5. BYSTOLIC [Concomitant]
  6. TRIAMTERENE/HCTZ [Concomitant]
  7. ISOSORBIDE MONONITRATE [Concomitant]
  8. LISINOPRIL [Concomitant]
  9. SIMVASTATIN [Concomitant]
  10. SINGULAIR [Concomitant]
  11. VENTOLIN                           /00139501/ [Concomitant]
  12. ASA [Concomitant]
  13. B12                                /00056202/ [Concomitant]
     Dosage: 1000 MG, UNK
  14. VITAMIN D3 [Concomitant]
  15. CITRACAL                           /00751520/ [Concomitant]
  16. OXYGEN [Concomitant]
     Dosage: 2 L, OTHER

REACTIONS (10)
  - Myocardial infarction [Unknown]
  - Pneumonia [Unknown]
  - Cholecystitis infective [Unknown]
  - Tremor [Unknown]
  - Feeling cold [Unknown]
  - Pain [Unknown]
  - Insomnia [Unknown]
  - Dizziness [Unknown]
  - Asthenia [Unknown]
  - Depression [Unknown]
